FAERS Safety Report 9851349 (Version 1)
Quarter: 2014Q1

REPORT INFORMATION
  Report Type: Spontaneous
  Country: US (occurrence: US)
  Receive Date: 20140129
  Receipt Date: 20140129
  Transmission Date: 20141002
  Serious: Yes (Other)
  Sender: FDA-Public Use
  Company Number: US-AMGEN-USASP2014004723

PATIENT
  Age: 77 Year
  Sex: Female

DRUGS (13)
  1. PROLIA [Suspect]
     Indication: PROPHYLAXIS
     Dosage: 60 MG, UNK
     Route: 065
     Dates: start: 2013
  2. CITRCAL PLUS D3 [Concomitant]
     Dosage: 1 DF, QD
  3. VITAMIN D3 [Concomitant]
     Dosage: 1 DF, QD
  4. CINNAMON                           /01647501/ [Concomitant]
     Dosage: 1000 MG, QD
  5. GABAPENTIN [Concomitant]
     Dosage: 600 MG, QD
  6. GLUCOSAMINE CHONDROITIN            /01430901/ [Concomitant]
     Dosage: 1 UNK, QD/MAX 1
  7. MAGNESIUM [Concomitant]
     Dosage: 250 MG, QD
  8. VYTORIN [Concomitant]
     Dosage: 10/40 MG
  9. LISINOPRIL [Concomitant]
     Dosage: 5 MG, QD
  10. IRON [Concomitant]
     Dosage: 65 MG, QD
  11. OMEGA 3                            /01333901/ [Concomitant]
     Dosage: UNK UNK, QD
  12. EPA DHA 720 [Concomitant]
     Dosage: UNK UNK, QD
  13. HYDROCODONE [Concomitant]
     Dosage: 5/325

REACTIONS (10)
  - Ovarian cancer stage IV [Unknown]
  - Metastases to lymph nodes [Unknown]
  - Retinal detachment [Unknown]
  - Influenza like illness [Unknown]
  - Nausea [Unknown]
  - Muscle spasms [Unknown]
  - Abdominal distension [Unknown]
  - Eructation [Unknown]
  - Fatigue [Unknown]
  - Hypertension [Unknown]
